FAERS Safety Report 4782638-5 (Version None)
Quarter: 2005Q3

REPORT INFORMATION
  Report Type: 
  Country: None (occurrence: None)
  Receive Date: 20050929
  Receipt Date: 20050517
  Transmission Date: 20060218
  Serious: No
  Sender: FDA-Public Use
  Company Number: 405666

PATIENT
  Sex: Male

DRUGS (4)
  1. COREG [Suspect]
     Dosage: 3.125MG TWICE PER DAY
     Route: 048
  2. TRIAMTERENE AND HYDROCHLOROTHIAZIDE [Concomitant]
     Dosage: 37.5U UNKNOWN
  3. NORVASC [Concomitant]
     Dosage: 5MG UNKNOWN
     Route: 065
  4. MAXZIDE [Concomitant]
     Route: 065

REACTIONS (8)
  - ANOREXIA [None]
  - ARTHRALGIA [None]
  - DRY MOUTH [None]
  - DRY THROAT [None]
  - NASAL DRYNESS [None]
  - SINUS DISORDER [None]
  - TONGUE COATED [None]
  - WEIGHT DECREASED [None]
